FAERS Safety Report 7558451-2 (Version None)
Quarter: 2011Q2

REPORT INFORMATION
  Report Type: 
  Country: None (occurrence: None)
  Receive Date: 20110620
  Receipt Date: 20110614
  Transmission Date: 20111010
  Serious: Yes (Hospitalization)
  Sender: FDA-Public Use
  Company Number: JP-AMGEN-US444458

PATIENT
  Age: 61 Year
  Sex: Female
  Weight: 61 kg

DRUGS (15)
  1. MOBIC [Concomitant]
     Indication: RHEUMATOID ARTHRITIS
     Dosage: 10 MG, QD
     Route: 048
  2. BONALON [Concomitant]
     Indication: OSTEOPOROSIS
     Dosage: 35 MG, QWK
     Route: 048
  3. AMOBAN [Concomitant]
     Indication: INSOMNIA
     Dosage: 7.5 MG, QD
     Route: 048
  4. ETANERCEPT [Suspect]
     Indication: RHEUMATOID ARTHRITIS
     Dosage: 25 MG, 2 TIMES/WK
     Route: 065
     Dates: start: 20080812, end: 20090220
  5. OMEPRAZOLE [Concomitant]
     Indication: GASTRITIS
     Dosage: 10 MG, QD
     Route: 048
  6. METHYCOBAL [Concomitant]
     Indication: MACULAR DEGENERATION
     Dosage: 1500 MG, QD
     Route: 048
  7. ZETIA [Concomitant]
     Indication: HYPERLIPIDAEMIA
     Dosage: 10 MG, QD
     Route: 048
  8. ISONIAZID [Concomitant]
     Dosage: UNSPECIFIED
     Route: 048
     Dates: start: 20090502, end: 20091202
  9. NORVASC [Concomitant]
     Indication: HYPERTENSION
     Dosage: 2.5 MG, QD
     Route: 048
  10. ALFACALCIDOL [Concomitant]
     Indication: OSTEOPOROSIS
     Dosage: 1 A?G, QD
     Route: 048
  11. LEFLUNOMIDE [Concomitant]
     Indication: RHEUMATOID ARTHRITIS
     Dosage: 20 MG, QD
     Route: 048
  12. PREDNISOLONE [Concomitant]
     Indication: RHEUMATOID ARTHRITIS
     Dosage: 7 MG, QD
     Route: 048
  13. ISONIAZID [Concomitant]
     Indication: ANTIBIOTIC PROPHYLAXIS
     Dosage: 300 MG, QD
     Route: 048
     Dates: end: 20090224
  14. GANATON [Concomitant]
     Indication: GASTRITIS
     Dosage: 150 MG, QD
     Route: 048
  15. DICLOFENAC SODIUM [Concomitant]
     Indication: RHEUMATOID ARTHRITIS
     Dosage: 50 MG, QD
     Route: 054

REACTIONS (4)
  - CONDITION AGGRAVATED [None]
  - ARTHRALGIA [None]
  - RHEUMATOID ARTHRITIS [None]
  - HENOCH-SCHONLEIN PURPURA [None]
